FAERS Safety Report 7006334-9 (Version None)
Quarter: 2010Q3

REPORT INFORMATION
  Report Type: 
  Country: None (occurrence: None)
  Receive Date: 20100921
  Receipt Date: 20100908
  Transmission Date: 20110219
  Serious: Yes (Life-Threatening, Hospitalization, Other)
  Sender: FDA-Public Use
  Company Number: BE-WATSON-2010-12534

PATIENT
  Age: 53 Year
  Sex: Female

DRUGS (2)
  1. TAMOXIFEN CITRATE [Suspect]
     Indication: BREAST CANCER
     Dosage: UNK
     Dates: start: 20070201
  2. VENLAFAXINE [Suspect]
     Indication: DEPRESSED MOOD
     Dosage: 75 MG, DAILY

REACTIONS (16)
  - AFFECTIVE DISORDER [None]
  - CONDITION AGGRAVATED [None]
  - DECREASED APPETITE [None]
  - DISTURBANCE IN ATTENTION [None]
  - DYSGEUSIA [None]
  - FATIGUE [None]
  - HAEMORRHOIDS [None]
  - HOT FLUSH [None]
  - HYPERHIDROSIS [None]
  - INSOMNIA [None]
  - MEMORY IMPAIRMENT [None]
  - SUICIDE ATTEMPT [None]
  - TINNITUS [None]
  - URINARY TRACT INFECTION [None]
  - VAGINAL DISCHARGE [None]
  - WEIGHT DECREASED [None]
